FAERS Safety Report 12565026 (Version 1)
Quarter: 2016Q3

REPORT INFORMATION
  Report Type: Spontaneous
  Country: US (occurrence: US)
  Receive Date: 20160718
  Receipt Date: 20160718
  Transmission Date: 20161109
  Serious: No
  Sender: FDA-Public Use
  Company Number: US-BAYER-2016-139145

PATIENT
  Age: 77 Year
  Sex: Female
  Weight: 63.39 kg

DRUGS (3)
  1. CARBIDOPA. [Concomitant]
     Active Substance: CARBIDOPA
     Dosage: 1 DF, QD
     Route: 048
     Dates: start: 20160714
  2. LEVODOPA [Concomitant]
     Active Substance: LEVODOPA
     Dosage: 1 DF, QD
     Route: 048
     Dates: start: 20160714
  3. CLARITIN [Suspect]
     Active Substance: LORATADINE
     Indication: SEASONAL ALLERGY
     Dosage: 1 DF, ONCE
     Route: 048
     Dates: end: 20160714

REACTIONS (1)
  - Drug ineffective [None]

NARRATIVE: CASE EVENT DATE: 2016
